FAERS Safety Report 10600276 (Version 1)
Quarter: 2014Q4

REPORT INFORMATION
  Report Type: Spontaneous
  Country: IN (occurrence: IN)
  Receive Date: 20141123
  Receipt Date: 20141123
  Transmission Date: 20150529
  Serious: Yes (Other)
  Sender: FDA-Public Use
  Company Number: IN-MYLANLABS-2014M1011513

PATIENT

DRUGS (2)
  1. PRAZOSIN [Suspect]
     Active Substance: PRAZOSIN
     Dosage: 1.5MG/DAY
     Route: 065
  2. PRAZOSIN [Suspect]
     Active Substance: PRAZOSIN
     Dosage: 0.5MG AT BEDTIME THEN INCREASED OVER 1 WEEK
     Route: 065

REACTIONS (4)
  - Cyanosis [Recovered/Resolved]
  - Metabolic acidosis [None]
  - Cardiac disorder [None]
  - Hypoxia [None]
